FAERS Safety Report 13400729 (Version 6)
Quarter: 2020Q4

REPORT INFORMATION
  Report Type: Spontaneous
  Country: US (occurrence: US)
  Receive Date: 20170404
  Receipt Date: 20201030
  Transmission Date: 20210113
  Serious: Yes (Congenital Anomaly, Other)
  Sender: FDA-Public Use
  Company Number: PHEH2017US009619

PATIENT
  Sex: Female

DRUGS (4)
  1. ZOFRAN [Suspect]
     Active Substance: ONDANSETRON HYDROCHLORIDE
     Indication: FOETAL EXPOSURE DURING PREGNANCY
     Route: 064
  2. ONDANSETRON [Suspect]
     Active Substance: ONDANSETRON
     Indication: FOETAL EXPOSURE DURING PREGNANCY
     Dosage: MOTHER^S DOSE: 1 DF, EVERY 8 TO 12 HOURS
     Route: 064
  3. ONDANSETRON HCL [Suspect]
     Active Substance: ONDANSETRON HYDROCHLORIDE
     Indication: FOETAL EXPOSURE DURING PREGNANCY
     Dosage: MOTHER^S DOSE FREQUENCY: QD
     Route: 064
  4. ONDANSETRON [Suspect]
     Active Substance: ONDANSETRON
     Indication: FOETAL EXPOSURE DURING PREGNANCY
     Dosage: MOTHER^S DOSE: 1 DF, EVERY 8 TO 12 HOURS
     Route: 064

REACTIONS (30)
  - Pulmonary artery stenosis congenital [Unknown]
  - Left-to-right cardiac shunt [Unknown]
  - Right-to-left cardiac shunt [Unknown]
  - Left ventricular hypertrophy [Unknown]
  - Foetal exposure during pregnancy [Unknown]
  - Blood glucose decreased [Unknown]
  - Laevocardia [Unknown]
  - Atrial septal defect [Unknown]
  - Right ventricular hypertrophy [Unknown]
  - Left ventricular dilatation [Unknown]
  - Pulmonary oedema [Unknown]
  - Abdominal distension [Unknown]
  - Atelectasis [Unknown]
  - Ventricular septal defect [Unknown]
  - Patent ductus arteriosus [Unknown]
  - Neonatal tachypnoea [Unknown]
  - Hyperdynamic left ventricle [Unknown]
  - Arrhythmia [Unknown]
  - Cardiac failure [Unknown]
  - Urine output decreased [Unknown]
  - Constipation [Unknown]
  - Ventricular hypoplasia [Unknown]
  - Heart disease congenital [Unknown]
  - Injury [Unknown]
  - Cardiomegaly [Unknown]
  - Congenital tricuspid valve atresia [Unknown]
  - Respiratory failure [Recovered/Resolved]
  - Hyperbilirubinaemia neonatal [Unknown]
  - Cardiac murmur [Unknown]
  - QRS axis abnormal [Unknown]
